FAERS Safety Report 6531846-1 (Version None)
Quarter: 2010Q1

REPORT INFORMATION
  Report Type: 
  Country: None (occurrence: None)
  Receive Date: 20100107
  Receipt Date: 20100107
  Transmission Date: 20100710
  Serious: Yes (Hospitalization, Other)
  Sender: FDA-Public Use
  Company Number: None

PATIENT
  Sex: Female
  Weight: 61.6892 kg

DRUGS (1)
  1. MIRENA [Suspect]
     Indication: CONTRACEPTION
     Dosage: 1 INTRAUTERAL DEVICE ONCE PER 5 YEARS INTRA-UTERINE
     Route: 015
     Dates: start: 20080325, end: 20091231

REACTIONS (29)
  - ACNE [None]
  - ASTHMA [None]
  - BLOOD CHOLESTEROL INCREASED [None]
  - BLOOD PRESSURE INCREASED [None]
  - CHEST DISCOMFORT [None]
  - COUGH [None]
  - DISTURBANCE IN ATTENTION [None]
  - DRUG INEFFECTIVE [None]
  - DYSPNOEA [None]
  - FATIGUE [None]
  - FEELING COLD [None]
  - HYPOAESTHESIA [None]
  - IMPAIRED HEALING [None]
  - INCREASED UPPER AIRWAY SECRETION [None]
  - INSOMNIA [None]
  - MIGRAINE [None]
  - MUSCLE SPASMS [None]
  - MUSCULOSKELETAL STIFFNESS [None]
  - ONYCHOCLASIS [None]
  - PAIN [None]
  - PALLOR [None]
  - POSTNASAL DRIP [None]
  - RHINORRHOEA [None]
  - SINUSITIS [None]
  - SKIN ULCER [None]
  - SUPPRESSED LACTATION [None]
  - THYROID CANCER [None]
  - THYROID CYST [None]
  - WEIGHT DECREASED [None]
